FAERS Safety Report 18810062 (Version 1)
Quarter: 2021Q1

REPORT INFORMATION
  Report Type: Spontaneous
  Country: US (occurrence: US)
  Receive Date: 20210129
  Receipt Date: 20210129
  Transmission Date: 20210419
  Serious: Yes (Other)
  Sender: FDA-Public Use
  Company Number: US-ROCHE-2759760

PATIENT
  Age: 67 Year
  Sex: Female

DRUGS (9)
  1. ASPIRIN. [Concomitant]
     Active Substance: ASPIRIN
  2. VALTREX [Concomitant]
     Active Substance: VALACYCLOVIR HYDROCHLORIDE
  3. CHOLECALCIFEROL [Concomitant]
     Active Substance: CHOLECALCIFEROL
  4. NIZORAL [Concomitant]
     Active Substance: KETOCONAZOLE
  5. NIZORAL [Concomitant]
     Active Substance: KETOCONAZOLE
  6. SEROQUEL [Concomitant]
     Active Substance: QUETIAPINE FUMARATE
  7. ALEVE [Concomitant]
     Active Substance: NAPROXEN SODIUM
  8. ANAPROX [Concomitant]
     Active Substance: NAPROXEN SODIUM
  9. OCREVUS [Suspect]
     Active Substance: OCRELIZUMAB
     Indication: RELAPSING-REMITTING MULTIPLE SCLEROSIS
     Dosage: ON 16/NOV/2020, RECEIVED NEXT INFUSION OF OCRELIZUMAB.
     Route: 065
     Dates: start: 20201030

REACTIONS (1)
  - Invasive breast carcinoma [Unknown]

NARRATIVE: CASE EVENT DATE: 20201230
